FAERS Safety Report 6341601-3 (Version None)
Quarter: 2009Q3

REPORT INFORMATION
  Report Type: 
  Country: None (occurrence: None)
  Receive Date: 20090904
  Receipt Date: 20090831
  Transmission Date: 20100115
  Serious: Yes (Hospitalization)
  Sender: FDA-Public Use
  Company Number: FR-GILEAD-2009-0024019

PATIENT
  Sex: Male

DRUGS (6)
  1. TRUVADA [Suspect]
     Indication: ACQUIRED IMMUNODEFICIENCY SYNDROME
     Route: 048
     Dates: start: 20090702
  2. PREZISTA [Suspect]
     Indication: ACQUIRED IMMUNODEFICIENCY SYNDROME
     Route: 048
     Dates: start: 20090702
  3. NORVIR [Suspect]
     Indication: ACQUIRED IMMUNODEFICIENCY SYNDROME
     Route: 048
     Dates: start: 20090702
  4. MALOCIDE [Suspect]
     Indication: TOXOPLASMOSIS
     Route: 048
     Dates: start: 20090702
  5. DALACINE [Suspect]
     Indication: TOXOPLASMOSIS
     Route: 048
     Dates: start: 20090716
  6. BRONCHOKOD [Suspect]
     Indication: COUGH
     Dates: start: 20090725, end: 20090727

REACTIONS (3)
  - COUGH [None]
  - PYREXIA [None]
  - TOXIC SKIN ERUPTION [None]
